FAERS Safety Report 4716346-3 (Version None)
Quarter: 2005Q3

REPORT INFORMATION
  Report Type: 
  Country: None (occurrence: None)
  Receive Date: 20050711
  Receipt Date: 20050603
  Transmission Date: 20060218
  Serious: Yes (Other)
  Sender: FDA-Public Use
  Company Number: ENTC2005-0151

PATIENT
  Age: 71 Year
  Sex: Male

DRUGS (6)
  1. STALEVO 100 [Suspect]
     Indication: PARKINSON'S DISEASE
     Dosage: 150 MG, 3 IN 1 D, ORAL
     Route: 048
     Dates: start: 20050517
  2. NIASPAN(UNKNOWN) [Concomitant]
  3. KLONOPIN(UNKNOWN) [Concomitant]
  4. PAXIL [Concomitant]
  5. OSCAL(UNKNOWN) [Concomitant]
  6. ECOTRIN(UNKNOWN) [Concomitant]

REACTIONS (2)
  - BACK PAIN [None]
  - PAIN IN EXTREMITY [None]
